FAERS Safety Report 9807630 (Version 1)
Quarter: 2014Q1

REPORT INFORMATION
  Report Type: Spontaneous
  Country: US (occurrence: US)
  Receive Date: 20140110
  Receipt Date: 20140110
  Transmission Date: 20141002
  Serious: No
  Sender: FDA-Public Use
  Company Number: US-SANOFI-AVENTIS-2013SA072976

PATIENT
  Sex: Male

DRUGS (8)
  1. PLAVIX [Suspect]
     Route: 065
  2. PLAVIX [Suspect]
     Route: 065
  3. GLUCOPHAGE [Suspect]
     Route: 065
  4. GLUCOPHAGE [Suspect]
     Route: 065
  5. JANUVIA [Suspect]
     Route: 065
  6. QUINAPRIL [Concomitant]
  7. BABY ASPIRIN [Concomitant]
  8. STATIN [Suspect]

REACTIONS (1)
  - Glomerular filtration rate decreased [Unknown]
